FAERS Safety Report 4996349-4 (Version None)
Quarter: 2006Q2

REPORT INFORMATION
  Report Type: 
  Country: None (occurrence: None)
  Receive Date: 20060505
  Receipt Date: 20060427
  Transmission Date: 20061013
  Serious: Yes (Other)
  Sender: FDA-Public Use
  Company Number: 2006058544

PATIENT

DRUGS (4)
  1. DALTEPARIN SODIUM [Suspect]
     Indication: PERCUTANEOUS CORONARY INTERVENTION
     Dosage: INTRAVENOUS
     Route: 042
  2. ASPIRIN [Concomitant]
  3. TICLOPIDINE [Concomitant]
  4. REOPRO [Concomitant]

REACTIONS (1)
  - CORONARY ARTERY SURGERY [None]
